FAERS Safety Report 24269150 (Version 1)
Quarter: 2024Q3

REPORT INFORMATION
  Report Type: Report from Study
  Country: US (occurrence: US)
  Receive Date: 20240830
  Receipt Date: 20240830
  Transmission Date: 20241017
  Serious: Yes (Hospitalization, Other)
  Sender: ABBVIE
  Company Number: US-ABBVIE-5894366

PATIENT
  Age: 23 Year
  Sex: Female

DRUGS (1)
  1. HUMIRA [Suspect]
     Active Substance: ADALIMUMAB
     Indication: Crohn^s disease
     Route: 058
     Dates: start: 20230602, end: 2024

REACTIONS (3)
  - Bipolar disorder [Recovering/Resolving]
  - Seizure [Recovering/Resolving]
  - Drug ineffective [Unknown]

NARRATIVE: CASE EVENT DATE: 20240703
